FAERS Safety Report 16914179 (Version 1)
Quarter: 2019Q4

REPORT INFORMATION
  Report Type: Spontaneous
  Country: CN (occurrence: CN)
  Receive Date: 20191014
  Receipt Date: 20191014
  Transmission Date: 20200122
  Serious: Yes (Disabling)
  Sender: FDA-Public Use
  Company Number: CN-PFIZER INC-2019436861

PATIENT
  Age: 25 Year
  Sex: Female
  Weight: 53 kg

DRUGS (3)
  1. CARBAZOCHROME SODIUM SULFONATE/SODIUM CHLORIDE [Concomitant]
     Indication: ECTOPIC PREGNANCY
     Dosage: 100 ML, 2X/DAY
     Route: 041
     Dates: start: 20190925, end: 20191001
  2. SODIUM CHLORIDE. [Concomitant]
     Active Substance: SODIUM CHLORIDE
     Indication: VEHICLE SOLUTION USE
     Dosage: 9 ML, 1X/DAY
     Route: 061
     Dates: start: 20190925, end: 20190925
  3. METHOTREXATE. [Suspect]
     Active Substance: METHOTREXATE
     Indication: ECTOPIC PREGNANCY
     Dosage: 100 MG, 1X/DAY
     Route: 061
     Dates: start: 20190925, end: 20190925

REACTIONS (9)
  - Mouth ulceration [Recovering/Resolving]
  - Epistaxis [Unknown]
  - Product use in unapproved indication [Unknown]
  - Diarrhoea [Recovering/Resolving]
  - Rash [Recovering/Resolving]
  - Pyrexia [Recovering/Resolving]
  - Off label use [Unknown]
  - Upper respiratory tract infection [Recovering/Resolving]
  - Bone marrow failure [Recovering/Resolving]

NARRATIVE: CASE EVENT DATE: 20190926
